FAERS Safety Report 4796712-0 (Version None)
Quarter: 2005Q3

REPORT INFORMATION
  Report Type: 
  Country: None (occurrence: None)
  Receive Date: 20050916
  Receipt Date: 20041227
  Transmission Date: 20060218
  Serious: Yes (Other)
  Sender: FDA-Public Use
  Company Number: US-JNJFOC-20041102377

PATIENT
  Age: 31 Year
  Sex: Female

DRUGS (1)
  1. TOPAMAX [Suspect]
     Indication: HEADACHE
     Dosage: 25 MG, TWICE DAILY. TOTAL LENGTH OF THERAPY - 3 WEEKS
     Dates: start: 20041005, end: 20041025

REACTIONS (1)
  - ANGLE CLOSURE GLAUCOMA [None]
